FAERS Safety Report 6827547-2 (Version None)
Quarter: 2010Q3

REPORT INFORMATION
  Report Type: 
  Country: None (occurrence: None)
  Receive Date: 20100709
  Receipt Date: 20100629
  Transmission Date: 20110219
  Serious: Yes (Hospitalization)
  Sender: FDA-Public Use
  Company Number: US-ABBOTT-10P-163-0654740-00

PATIENT
  Sex: Female
  Weight: 83.99 kg

DRUGS (10)
  1. SYNTHROID [Suspect]
     Indication: HYPOTHYROIDISM
     Route: 048
     Dates: start: 19760101, end: 20100101
  2. SYNTHROID [Suspect]
     Dosage: 1/2 TAB TWICE DAILY
     Route: 048
     Dates: start: 20100101
  3. SYNTHROID [Suspect]
  4. HYDROCHLOROTHIAZIDE [Concomitant]
     Indication: HYPERTENSION
     Route: 048
  5. KLOR-CON [Concomitant]
     Indication: SUPPLEMENTATION THERAPY
     Route: 048
  6. NEXIUM [Concomitant]
     Indication: GASTROOESOPHAGEAL REFLUX DISEASE
     Route: 048
  7. ZYRTEC [Concomitant]
     Indication: SEASONAL ALLERGY
  8. ANTIVERT [Concomitant]
     Indication: VERTIGO
  9. VITAMIN D [Concomitant]
     Indication: VITAMIN D DEFICIENCY
  10. CORTISONE [Concomitant]
     Indication: TRIGGER FINGER
     Dates: start: 20100602, end: 20100602

REACTIONS (12)
  - ANXIETY [None]
  - COELIAC DISEASE [None]
  - COLITIS MICROSCOPIC [None]
  - DEHYDRATION [None]
  - DIARRHOEA [None]
  - FEELING ABNORMAL [None]
  - GLUCOSE TOLERANCE IMPAIRED [None]
  - HYPOGLYCAEMIA [None]
  - JOINT SWELLING [None]
  - OEDEMA PERIPHERAL [None]
  - RHEUMATOID ARTHRITIS [None]
  - TRIGGER FINGER [None]
